FAERS Safety Report 25239728 (Version 2)
Quarter: 2025Q2

REPORT INFORMATION
  Report Type: Spontaneous
  Country: AU (occurrence: AU)
  Receive Date: 20250425
  Receipt Date: 20250430
  Transmission Date: 20250717
  Serious: Yes (Hospitalization)
  Sender: PFIZER
  Company Number: AU-TAKEDA-2025TUS038097

PATIENT
  Age: 29 Year
  Sex: Female

DRUGS (7)
  1. PANTOPRAZOLE [Suspect]
     Active Substance: PANTOPRAZOLE
     Route: 065
  2. ACETAMINOPHEN [Suspect]
     Active Substance: ACETAMINOPHEN
     Route: 065
  3. CARIPRAZINE [Suspect]
     Active Substance: CARIPRAZINE
     Route: 065
  4. IVABRADINE [Suspect]
     Active Substance: IVABRADINE
     Indication: Postural orthostatic tachycardia syndrome
     Route: 065
  5. LAMOTRIGINE [Suspect]
     Active Substance: LAMOTRIGINE
     Route: 065
  6. METOCLOPRAMIDE HYDROCHLORIDE [Suspect]
     Active Substance: METOCLOPRAMIDE HYDROCHLORIDE
     Route: 065
  7. TOPIRAMATE [Suspect]
     Active Substance: TOPIRAMATE
     Route: 065

REACTIONS (2)
  - Coma scale abnormal [Recovering/Resolving]
  - Overdose [Recovering/Resolving]
